FAERS Safety Report 10213500 (Version 1)
Quarter: 2014Q2

REPORT INFORMATION
  Report Type: Spontaneous
  Country: HU (occurrence: HU)
  Receive Date: 20140603
  Receipt Date: 20140603
  Transmission Date: 20141212
  Serious: Yes (Hospitalization)
  Sender: FDA-Public Use
  Company Number: HU-JNJFOC-20140518108

PATIENT
  Age: 71 Year
  Sex: Female

DRUGS (7)
  1. XARELTO [Suspect]
     Indication: CEREBROVASCULAR ACCIDENT PROPHYLAXIS
     Route: 048
     Dates: start: 20140501, end: 20140512
  2. XARELTO [Suspect]
     Indication: CEREBROVASCULAR ACCIDENT PROPHYLAXIS
     Route: 048
     Dates: end: 20140428
  3. XARELTO [Suspect]
     Indication: ATRIAL FIBRILLATION
     Route: 048
     Dates: end: 20140428
  4. XARELTO [Suspect]
     Indication: ATRIAL FIBRILLATION
     Route: 048
     Dates: start: 20140501, end: 20140512
  5. CLEXANE [Concomitant]
     Dosage: 0.4 MG IN MORNING AND 0.8 MG IN EVENING
     Dates: start: 20140430, end: 201405
  6. CLEXANE [Concomitant]
     Dosage: 0.4ML, THEN 0.8 MG TWICE A DAY
     Dates: start: 20140512, end: 20140516
  7. CLEXANE [Concomitant]
     Dates: start: 20140429, end: 20140430

REACTIONS (2)
  - Atrial thrombosis [Not Recovered/Not Resolved]
  - Drug ineffective [Unknown]
